FAERS Safety Report 24767268 (Version 1)
Quarter: 2024Q4

REPORT INFORMATION
  Report Type: Spontaneous
  Country: PL (occurrence: PL)
  Receive Date: 20241223
  Receipt Date: 20241223
  Transmission Date: 20250115
  Serious: Yes (Life-Threatening, Hospitalization)
  Sender: FRESENIUS KABI
  Company Number: None

PATIENT
  Age: 63 Year
  Sex: Female
  Weight: 61 kg

DRUGS (5)
  1. PACLITAXEL [Suspect]
     Active Substance: PACLITAXEL
     Indication: Ovarian cancer
     Route: 042
     Dates: start: 20191007, end: 20191008
  2. ONDANSETRON [Suspect]
     Active Substance: ONDANSETRON
     Indication: Ovarian cancer
     Route: 042
     Dates: start: 20191007, end: 20191007
  3. CARBOPLATIN [Suspect]
     Active Substance: CARBOPLATIN
     Indication: Ovarian cancer
     Route: 042
     Dates: start: 20191007, end: 20191007
  4. DEXAMETHASONE [Suspect]
     Active Substance: DEXAMETHASONE
     Indication: Ovarian cancer
     Route: 042
     Dates: start: 20191007, end: 20191007
  5. CLEMASTINE [Suspect]
     Active Substance: CLEMASTINE
     Indication: Ovarian cancer
     Route: 042
     Dates: start: 20191007, end: 20191007

REACTIONS (4)
  - Hypersensitivity [Recovered/Resolved]
  - Respiratory disorder [Recovered/Resolved]
  - Unresponsive to stimuli [Recovered/Resolved]
  - Erythema [Recovered/Resolved]

NARRATIVE: CASE EVENT DATE: 20191007
